FAERS Safety Report 25037810 (Version 1)
Quarter: 2025Q1

REPORT INFORMATION
  Report Type: Spontaneous
  Country: GB (occurrence: GB)
  Receive Date: 20250304
  Receipt Date: 20250304
  Transmission Date: 20250409
  Serious: Yes (Other)
  Sender: TEVA
  Company Number: GB-MHRA-TPP26013331C10563802YC1740500281874

PATIENT
  Age: 12 Year
  Sex: Male
  Weight: 42 kg

DRUGS (4)
  1. DESMOPRESSIN [Suspect]
     Active Substance: DESMOPRESSIN
     Indication: Product used for unknown indication
     Dosage: TAKE 1 MELT AT BEDTIME. INCREASE TO 2 MELTS IF ...  SUBLINGUAL TABLETS SUGAR FREE
     Route: 065
     Dates: start: 20250123, end: 20250222
  2. METHYLPHENIDATE HYDROCHLORIDE [Concomitant]
     Active Substance: METHYLPHENIDATE HYDROCHLORIDE
     Indication: Product used for unknown indication
     Dosage: TAKE ONE CAPSULE DAILY   (TOTAL DOSE = 40 MG) -...
     Route: 065
     Dates: start: 20241007
  3. MELATONIN [Concomitant]
     Active Substance: MELATONIN
     Indication: Product used for unknown indication
     Dosage: TAKE ONE AT NIGHT
     Route: 065
     Dates: start: 20240524
  4. AMOXICILLIN [Concomitant]
     Active Substance: AMOXICILLIN
     Indication: Product used for unknown indication
     Dosage: TAKE 10ML THREE TIMES A DAY FOR 5 DAYS, TO TREA...
     Route: 065
     Dates: start: 20250206, end: 20250211

REACTIONS (2)
  - Abnormal behaviour [Recovered/Resolved]
  - Alopecia [Recovered/Resolved]
